FAERS Safety Report 5313595-0 (Version None)
Quarter: 2007Q2

REPORT INFORMATION
  Report Type: 
  Country: None (occurrence: None)
  Receive Date: 20070501
  Receipt Date: 20070423
  Transmission Date: 20071010
  Serious: Yes (Disabling, Other)
  Sender: FDA-Public Use
  Company Number: US-JNJFOC-20070405485

PATIENT
  Sex: Female
  Weight: 111.13 kg

DRUGS (6)
  1. FENTANYL TRANSDERMAL SYSTEM [Suspect]
     Indication: PAIN IN EXTREMITY
     Route: 062
  2. FENTANYL TRANSDERMAL SYSTEM [Suspect]
     Indication: BACK PAIN
     Route: 062
  3. VICODIN [Concomitant]
     Indication: PAIN
     Route: 048
  4. MORPHINE [Concomitant]
     Indication: PAIN
     Route: 048
  5. GLUCOPHAGE [Concomitant]
     Indication: DIABETES MELLITUS INSULIN-DEPENDENT
     Route: 048
  6. UNSPECIFIED [Concomitant]
     Indication: HYPERTENSION
     Route: 048

REACTIONS (5)
  - FALL [None]
  - IMPAIRED HEALING [None]
  - JOINT INJURY [None]
  - OEDEMA [None]
  - WRONG TECHNIQUE IN DRUG USAGE PROCESS [None]
